FAERS Safety Report 6275553-1 (Version None)
Quarter: 2009Q3

REPORT INFORMATION
  Report Type: 
  Country: None (occurrence: None)
  Receive Date: 20090721
  Receipt Date: 20090709
  Transmission Date: 20100115
  Serious: Yes (Other)
  Sender: FDA-Public Use
  Company Number: GB-ELI_LILLY_AND_COMPANY-GB200903001510

PATIENT
  Age: 15 Year
  Sex: Female

DRUGS (2)
  1. PROZAC [Suspect]
     Indication: ANOREXIA NERVOSA
     Dosage: 10 MG, EACH MORNING
  2. PROZAC [Suspect]
     Dosage: 20 MG, EACH MORNING

REACTIONS (6)
  - ABNORMAL BEHAVIOUR [None]
  - ASTROCYTOMA, LOW GRADE [None]
  - BRAIN OEDEMA [None]
  - MOUTH ULCERATION [None]
  - RASH [None]
  - SWELLING FACE [None]
